FAERS Safety Report 13033038 (Version 3)
Quarter: 2019Q3

REPORT INFORMATION
  Report Type: Report from Study
  Country: JP (occurrence: JP)
  Receive Date: 20161215
  Receipt Date: 20190705
  Transmission Date: 20191004
  Serious: Yes (Hospitalization, Other)
  Sender: FDA-Public Use
  Company Number: PHJP2016JP035601

PATIENT
  Age: 71 Year
  Sex: Female

DRUGS (4)
  1. TAFINLAR [Suspect]
     Active Substance: DABRAFENIB MESYLATE
     Indication: MALIGNANT MELANOMA STAGE IV
     Dosage: 300 MG, QD
     Route: 048
     Dates: start: 20161129, end: 20161206
  2. MEKINIST [Suspect]
     Active Substance: TRAMETINIB DIMETHYL SULFOXIDE
     Dosage: 2 MG, UNK
     Route: 048
     Dates: start: 20170204, end: 20170418
  3. MEKINIST [Suspect]
     Active Substance: TRAMETINIB DIMETHYL SULFOXIDE
     Indication: MALIGNANT MELANOMA STAGE IV
     Dosage: 2 MG, QD
     Route: 048
     Dates: start: 20161129, end: 20161206
  4. TAFINLAR [Suspect]
     Active Substance: DABRAFENIB MESYLATE
     Dosage: 300 MG, UNK
     Route: 048
     Dates: start: 20170204, end: 20170418

REACTIONS (5)
  - Malignant melanoma stage IV [Unknown]
  - Hepatic function abnormal [Unknown]
  - Pyrexia [Unknown]
  - Malignant neoplasm progression [Unknown]
  - Cholecystitis [Recovered/Resolved]

NARRATIVE: CASE EVENT DATE: 20161205
